FAERS Safety Report 23449491 (Version 1)
Quarter: 2024Q1

REPORT INFORMATION
  Report Type: Spontaneous
  Country: US (occurrence: US)
  Receive Date: 20240129
  Receipt Date: 20240129
  Transmission Date: 20240409
  Serious: Yes (Other)
  Sender: FDA-Public Use
  Company Number: US-CIPLA LTD.-2024US00741

PATIENT

DRUGS (1)
  1. SERTRALINE [Suspect]
     Active Substance: SERTRALINE HYDROCHLORIDE
     Indication: Product used for unknown indication
     Dosage: UNK
     Route: 065

REACTIONS (7)
  - Blindness [Not Recovered/Not Resolved]
  - Penis disorder [Not Recovered/Not Resolved]
  - Libido disorder [Not Recovered/Not Resolved]
  - Drug ineffective [Unknown]
  - Eye swelling [Not Recovered/Not Resolved]
  - Sexual dysfunction [Not Recovered/Not Resolved]
  - Muscle spasms [Not Recovered/Not Resolved]
